FAERS Safety Report 24298457 (Version 2)
Quarter: 2024Q4

REPORT INFORMATION
  Report Type: Spontaneous
  Country: NL (occurrence: NL)
  Receive Date: 20240909
  Receipt Date: 20241028
  Transmission Date: 20250114
  Serious: Yes (Hospitalization, Other)
  Sender: ALEXION PHARMACEUTICALS
  Company Number: None

PATIENT
  Age: 80 Year
  Weight: 85 kg

DRUGS (30)
  1. ULTOMIRIS [Suspect]
     Active Substance: RAVULIZUMAB-CWVZ
     Indication: Paroxysmal nocturnal haemoglobinuria
     Dosage: 3300 MG EVERY TWO MONTHS
     Route: 065
  2. ULTOMIRIS [Suspect]
     Active Substance: RAVULIZUMAB-CWVZ
     Dosage: 3300 MG EVERY TWO MONTHS
  3. ULTOMIRIS [Suspect]
     Active Substance: RAVULIZUMAB-CWVZ
     Dosage: 3300 MG EVERY TWO MONTHS
     Route: 065
  4. ULTOMIRIS [Suspect]
     Active Substance: RAVULIZUMAB-CWVZ
     Dosage: 3300 MG EVERY TWO MONTHS
  5. PANTOPRAZOLE SODIUM [Concomitant]
     Active Substance: PANTOPRAZOLE SODIUM
     Indication: Product used for unknown indication
     Dosage: 40 MILLIGRAM
  6. PANTOPRAZOLE SODIUM [Concomitant]
     Active Substance: PANTOPRAZOLE SODIUM
     Dosage: 40 MILLIGRAM
     Route: 065
  7. ACETYLSALICYLZUUR ACTAVIS [Concomitant]
     Indication: Product used for unknown indication
     Dosage: 80 MILLIGRAM
     Route: 065
  8. ACETYLSALICYLZUUR ACTAVIS [Concomitant]
     Dosage: 80 MILLIGRAM
  9. ACETYLSALICYLZUUR ACTAVIS [Concomitant]
     Dosage: 80 MILLIGRAM
     Route: 065
  10. ACETYLSALICYLZUUR ACTAVIS [Concomitant]
     Dosage: 80 MILLIGRAM
  11. CIPROFLOXACIN HYDROCHLORIDE [Concomitant]
     Active Substance: CIPROFLOXACIN HYDROCHLORIDE
     Indication: Product used for unknown indication
     Dosage: 750 MILLIGRAM
     Route: 065
  12. CIPROFLOXACIN HYDROCHLORIDE [Concomitant]
     Active Substance: CIPROFLOXACIN HYDROCHLORIDE
     Dosage: 750 MILLIGRAM
  13. CIPROFLOXACIN HYDROCHLORIDE [Concomitant]
     Active Substance: CIPROFLOXACIN HYDROCHLORIDE
     Dosage: 750 MILLIGRAM
     Route: 065
  14. CIPROFLOXACIN HYDROCHLORIDE [Concomitant]
     Active Substance: CIPROFLOXACIN HYDROCHLORIDE
     Dosage: 750 MILLIGRAM
  15. FOLIUMZUUR ACTAVIS [Concomitant]
     Indication: Product used for unknown indication
     Dosage: 5 MILLIGRAM
     Route: 065
  16. FOLIUMZUUR ACTAVIS [Concomitant]
     Dosage: 5 MILLIGRAM
  17. FOLIUMZUUR ACTAVIS [Concomitant]
     Dosage: 5 MILLIGRAM
     Route: 065
  18. FOLIUMZUUR ACTAVIS [Concomitant]
     Dosage: 5 MILLIGRAM
  19. FELODIPINE ACTAVIS [Concomitant]
     Indication: Product used for unknown indication
     Dosage: UNK
     Route: 065
  20. FELODIPINE ACTAVIS [Concomitant]
     Dosage: UNK
  21. FELODIPINE ACTAVIS [Concomitant]
     Dosage: UNK
     Route: 065
  22. FELODIPINE ACTAVIS [Concomitant]
     Dosage: UNK
  23. HYPROMELLOSES [Concomitant]
     Active Substance: HYPROMELLOSES
     Indication: Product used for unknown indication
     Dosage: 3 MILLIGRAM
  24. HYPROMELLOSES [Concomitant]
     Active Substance: HYPROMELLOSES
     Dosage: 3 MILLIGRAM
     Route: 065
  25. CALCIUM CARBIMIDE [Concomitant]
     Active Substance: CALCIUM CARBIMIDE
     Indication: Product used for unknown indication
     Dosage: 1.25 GRAM
  26. CALCIUM CARBIMIDE [Concomitant]
     Active Substance: CALCIUM CARBIMIDE
     Dosage: 1.25 GRAM
     Route: 065
  27. COLECALCIFEROCAPS [Concomitant]
     Indication: Product used for unknown indication
     Dosage: 500 MILLIGRAM
  28. COLECALCIFEROCAPS [Concomitant]
     Dosage: 500 MILLIGRAM
     Route: 065
  29. PERINDOPRIL [Concomitant]
     Active Substance: PERINDOPRIL
     Indication: Product used for unknown indication
     Dosage: 4 MILLIGRAM
  30. PERINDOPRIL [Concomitant]
     Active Substance: PERINDOPRIL
     Dosage: 4 MILLIGRAM
     Route: 065

REACTIONS (1)
  - Streptococcal bacteraemia [Recovering/Resolving]
